FAERS Safety Report 7216995-7 (Version None)
Quarter: 2011Q1

REPORT INFORMATION
  Report Type: 
  Country: None (occurrence: None)
  Receive Date: 20110110
  Receipt Date: 20101021
  Transmission Date: 20110831
  Serious: No
  Sender: FDA-Public Use
  Company Number: A0884244A

PATIENT
  Age: 64 Year
  Sex: Female

DRUGS (5)
  1. REQUIP XL [Suspect]
     Dosage: 2MG PER DAY
     Route: 048
     Dates: start: 20100927, end: 20100929
  2. LAMICTAL [Concomitant]
     Indication: DEPRESSION
  3. UNKNOWN MEDICATION [Concomitant]
  4. COZAAR [Concomitant]
  5. METOPROLOL TARTRATE [Concomitant]

REACTIONS (4)
  - DIZZINESS [None]
  - HEADACHE [None]
  - VOMITING [None]
  - NAUSEA [None]
